FAERS Safety Report 17739027 (Version 1)
Quarter: 2020Q2

REPORT INFORMATION
  Report Type: Spontaneous
  Country: US (occurrence: US)
  Receive Date: 20200430
  Receipt Date: 20200430
  Transmission Date: 20200714
  Serious: No
  Sender: FDA-Public Use
  Company Number: None

PATIENT
  Age: 76 Year
  Sex: Female
  Weight: 54.43 kg

DRUGS (4)
  1. OTEZLA [Suspect]
     Active Substance: APREMILAST
     Indication: PSORIATIC ARTHROPATHY
     Route: 048
     Dates: start: 201705
  2. OTEZLA [Suspect]
     Active Substance: APREMILAST
     Indication: POLYARTHRITIS
     Route: 048
     Dates: start: 201705
  3. OTEZLA [Suspect]
     Active Substance: APREMILAST
  4. OTEZLA [Suspect]
     Active Substance: APREMILAST
     Indication: POLYARTHRITIS

REACTIONS (2)
  - Peripheral swelling [None]
  - Rash [None]
